FAERS Safety Report 10170235 (Version 2)
Quarter: 2014Q2

REPORT INFORMATION
  Report Type: Spontaneous
  Country: US (occurrence: US)
  Receive Date: 20140513
  Receipt Date: 20140513
  Transmission Date: 20141212
  Serious: Yes (Other)
  Sender: FDA-Public Use
  Company Number: US-MYLANLABS-2014S1010641

PATIENT
  Age: 83 Year
  Sex: Female
  Weight: 56.7 kg

DRUGS (3)
  1. FENTANYL TRANSDERMAL SYSTEM [Suspect]
     Indication: MULTIPLE FRACTURES
     Dosage: CHANGES Q72H
     Route: 062
     Dates: start: 2013, end: 2014
  2. AMOXICILLIN SODIUM W/CLAVULANATE POTASSIUM [Concomitant]
     Indication: TOOTH ABSCESS
     Dosage: 500/125MG
     Route: 048
  3. THYROID [Concomitant]

REACTIONS (8)
  - Tooth abscess [Not Recovered/Not Resolved]
  - Dental caries [Not Recovered/Not Resolved]
  - Balance disorder [Not Recovered/Not Resolved]
  - Fall [Not Recovered/Not Resolved]
  - Muscular weakness [Not Recovered/Not Resolved]
  - Fatigue [Not Recovered/Not Resolved]
  - Decreased appetite [Not Recovered/Not Resolved]
  - Bone disorder [Not Recovered/Not Resolved]
